FAERS Safety Report 9496686 (Version 1)
Quarter: 2013Q3

REPORT INFORMATION
  Report Type: Spontaneous
  Country: PL (occurrence: PL)
  Receive Date: 20130904
  Receipt Date: 20130904
  Transmission Date: 20140515
  Serious: Yes (Other)
  Sender: FDA-Public Use
  Company Number: PHHY2013PL095725

PATIENT
  Age: 52 Year
  Sex: Male
  Weight: 85 kg

DRUGS (6)
  1. OSPAMOX [Suspect]
     Indication: HELICOBACTER INFECTION
     Dosage: 1000 MG, QD
     Route: 048
     Dates: start: 20130827
  2. PHENYTOINUM [Concomitant]
     Route: 048
  3. FINLEPSIN [Concomitant]
  4. CAVINTON FORTE [Concomitant]
  5. XARTAN [Concomitant]
  6. SABRIL [Concomitant]

REACTIONS (3)
  - Stupor [Not Recovered/Not Resolved]
  - Chest pain [Not Recovered/Not Resolved]
  - Epileptic aura [Not Recovered/Not Resolved]
